FAERS Safety Report 8425114-0 (Version None)
Quarter: 2012Q2

REPORT INFORMATION
  Report Type: 
  Country: None (occurrence: None)
  Receive Date: 20120601
  Receipt Date: 20120523
  Transmission Date: 20120825
  Serious: Yes (Death, Other)
  Sender: FDA-Public Use
  Company Number: WAES 1205USA04633

PATIENT
  Age: 62 Year
  Sex: Female

DRUGS (3)
  1. CAP VORINOSTAT UNK [Suspect]
     Indication: MYELODYSPLASTIC SYNDROME
     Dosage: 400 MG/DAILY/PO
     Route: 048
     Dates: start: 20120427, end: 20120510
  2. VELCADE [Suspect]
     Indication: MYELODYSPLASTIC SYNDROME
     Dosage: 2025 MG/SC
     Route: 058
     Dates: start: 20120427, end: 20120521
  3. VELCADE [Suspect]
     Indication: ACUTE MYELOID LEUKAEMIA
     Dosage: 2025 MG/SC
     Route: 058
     Dates: start: 20120427, end: 20120521

REACTIONS (9)
  - ALANINE AMINOTRANSFERASE INCREASED [None]
  - ARRHYTHMIA [None]
  - HYPOPHAGIA [None]
  - ASPARTATE AMINOTRANSFERASE INCREASED [None]
  - NAUSEA [None]
  - BLOOD SODIUM DECREASED [None]
  - ELECTROCARDIOGRAM QT PROLONGED [None]
  - BLOOD CALCIUM DECREASED [None]
  - CARDIO-RESPIRATORY ARREST [None]
